FAERS Safety Report 10155421 (Version 2)
Quarter: 2014Q2

REPORT INFORMATION
  Report Type: Spontaneous
  Country: US (occurrence: US)
  Receive Date: 20140506
  Receipt Date: 20140516
  Transmission Date: 20141212
  Serious: No
  Sender: FDA-Public Use
  Company Number: US-009507513-1404USA014845

PATIENT
  Sex: 0

DRUGS (4)
  1. EMEND [Suspect]
     Indication: PROPHYLAXIS OF NAUSEA AND VOMITING
     Dosage: UNK
     Route: 042
  2. DEXAMETHASONE [Concomitant]
  3. BENADRYL [Concomitant]
  4. ZOFRAN [Concomitant]

REACTIONS (1)
  - Dyspnoea [Recovering/Resolving]
